FAERS Safety Report 7141676-8 (Version None)
Quarter: 2010Q4

REPORT INFORMATION
  Report Type: 
  Country: None (occurrence: None)
  Receive Date: 20101207
  Receipt Date: 20101124
  Transmission Date: 20110411
  Serious: Yes (Other)
  Sender: FDA-Public Use
  Company Number: PHHY2009CA49055

PATIENT
  Sex: Female

DRUGS (3)
  1. ACLASTA [Suspect]
     Indication: OSTEOPOROSIS
     Dosage: 5MG/100CC
     Route: 042
     Dates: start: 20091103, end: 20091103
  2. TYLENOL-500 [Concomitant]
     Dosage: UNK
  3. ASPIRIN [Concomitant]
     Dosage: UNK

REACTIONS (10)
  - CAST APPLICATION [None]
  - COUGH [None]
  - DIARRHOEA [None]
  - DYSPHONIA [None]
  - DYSPNOEA [None]
  - FALL [None]
  - LISTERIOSIS [None]
  - MALAISE [None]
  - PYREXIA [None]
  - UPPER LIMB FRACTURE [None]
